FAERS Safety Report 7236093-6 (Version None)
Quarter: 2011Q1

REPORT INFORMATION
  Report Type: 
  Country: None (occurrence: None)
  Receive Date: 20110120
  Receipt Date: 20110107
  Transmission Date: 20110831
  Serious: Yes (Hospitalization)
  Sender: FDA-Public Use
  Company Number: US-CELGENEUS-163-21880-10120663

PATIENT
  Sex: Female

DRUGS (3)
  1. REVLIMID [Suspect]
     Indication: MYELODYSPLASTIC SYNDROME
     Route: 048
     Dates: start: 20101101
  2. REVLIMID [Suspect]
     Route: 048
     Dates: start: 20100101
  3. TRACLEER [Concomitant]
     Indication: PULMONARY HYPERTENSION
     Route: 048
     Dates: start: 20080103

REACTIONS (11)
  - OEDEMA PERIPHERAL [None]
  - NASOPHARYNGITIS [None]
  - TREMOR [None]
  - DIARRHOEA [None]
  - ANXIETY [None]
  - WHITE BLOOD CELL COUNT DECREASED [None]
  - RED BLOOD CELL COUNT DECREASED [None]
  - MALAISE [None]
  - NAUSEA [None]
  - ANAEMIA [None]
  - THROMBOPHLEBITIS SUPERFICIAL [None]
